FAERS Safety Report 17493113 (Version 3)
Quarter: 2020Q2

REPORT INFORMATION
  Report Type: Spontaneous
  Country: US (occurrence: US)
  Receive Date: 20200304
  Receipt Date: 20200506
  Transmission Date: 20200713
  Serious: No
  Sender: FDA-Public Use
  Company Number: US-ASTRAZENECA-2020SE29114

PATIENT
  Sex: Male
  Weight: 102.5 kg

DRUGS (5)
  1. METFORMIN [Concomitant]
     Active Substance: METFORMIN HYDROCHLORIDE
  2. JARDIANCE [Concomitant]
     Active Substance: EMPAGLIFLOZIN
  3. PIOGLITAZONE. [Concomitant]
     Active Substance: PIOGLITAZONE
  4. ALLEGRY SHOT [Concomitant]
  5. BYDUREON BCISE [Suspect]
     Active Substance: EXENATIDE
     Indication: TYPE 2 DIABETES MELLITUS
     Route: 058
     Dates: start: 2017

REACTIONS (6)
  - Intentional device misuse [Unknown]
  - Device defective [Unknown]
  - Wrong technique in device usage process [Unknown]
  - Injection site mass [Recovered/Resolved]
  - Device delivery system issue [Unknown]
  - Device leakage [Unknown]
